FAERS Safety Report 12013935 (Version 1)
Quarter: 2016Q1

REPORT INFORMATION
  Report Type: Spontaneous
  Country: TW (occurrence: TW)
  Receive Date: 20160205
  Receipt Date: 20160205
  Transmission Date: 20160526
  Serious: Yes (Death, Other)
  Sender: FDA-Public Use
  Company Number: PHHY2016TW011942

PATIENT
  Age: 18 Year
  Sex: Male

DRUGS (6)
  1. VINCRISTINE [Suspect]
     Active Substance: VINCRISTINE
     Indication: LYMPHOMA
     Route: 065
  2. CYCLOPHOSPHAMIDE. [Suspect]
     Active Substance: CYCLOPHOSPHAMIDE
     Indication: LYMPHOMA
     Route: 065
  3. BLEOMYCIN [Suspect]
     Active Substance: BLEOMYCIN SULFATE
     Indication: LYMPHOMA
     Route: 065
  4. DOXORUBICIN [Suspect]
     Active Substance: DOXORUBICIN
     Indication: LYMPHOMA
     Route: 065
  5. METHOTREXATE [Suspect]
     Active Substance: METHOTREXATE
     Indication: LYMPHOMA
     Route: 065
  6. DEXAMETHASONE. [Suspect]
     Active Substance: DEXAMETHASONE
     Indication: LYMPHOMA
     Route: 065

REACTIONS (16)
  - Hepatitis cholestatic [Unknown]
  - Lymphoma [Unknown]
  - Neoplasm progression [Unknown]
  - Treatment failure [Unknown]
  - Sepsis [Fatal]
  - Lymphadenopathy [Unknown]
  - Myalgia [Unknown]
  - Liver injury [Unknown]
  - Hypertriglyceridaemia [Unknown]
  - Jaundice [Unknown]
  - Pancytopenia [Unknown]
  - Disease progression [Unknown]
  - Gastrointestinal haemorrhage [Fatal]
  - Bone pain [Unknown]
  - Hepatomegaly [Unknown]
  - Bone marrow infiltration [Unknown]
